FAERS Safety Report 10765919 (Version 1)
Quarter: 2015Q1

REPORT INFORMATION
  Report Type: Spontaneous
  Country: US (occurrence: None)
  Receive Date: 20150204
  Receipt Date: 20150204
  Transmission Date: 20150721
  Serious: Yes (Disabling)
  Sender: FDA-Public Use
  Company Number: None

PATIENT
  Age: 67 Year
  Sex: Female
  Weight: 97.52 kg

DRUGS (5)
  1. LEVAQUIN [Suspect]
     Active Substance: LEVOFLOXACIN
     Indication: PNEUMONIA
     Dosage: MOUTH PILL
     Route: 048
     Dates: start: 20141109, end: 20141119
  2. MOTRIN [Concomitant]
     Active Substance: IBUPROFEN
  3. CPAP [Concomitant]
     Active Substance: DEVICE
  4. IBUPHRSON [Concomitant]
  5. AMIPRO [Concomitant]

REACTIONS (4)
  - Musculoskeletal pain [None]
  - Pain in extremity [None]
  - Activities of daily living impaired [None]
  - Musculoskeletal disorder [None]

NARRATIVE: CASE EVENT DATE: 20141111
